FAERS Safety Report 7308012-5 (Version None)
Quarter: 2011Q1

REPORT INFORMATION
  Report Type: 
  Country: None (occurrence: None)
  Receive Date: 20110223
  Receipt Date: 20110221
  Transmission Date: 20110831
  Serious: Yes (Disabling, Other)
  Sender: FDA-Public Use
  Company Number: GB-TEVA-219733ISR

PATIENT
  Sex: Female
  Weight: 79 kg

DRUGS (2)
  1. ESCITALOPRAM [Concomitant]
     Indication: DEPRESSION
     Route: 048
     Dates: start: 20060101, end: 20091201
  2. CIPROFLOXACIN [Suspect]
     Indication: LOWER RESPIRATORY TRACT INFECTION
     Route: 048
     Dates: start: 20090415, end: 20090424

REACTIONS (1)
  - EOSINOPHILIC FASCIITIS [None]
